FAERS Safety Report 8620181-3 (Version None)
Quarter: 2012Q3

REPORT INFORMATION
  Report Type: 
  Country: None (occurrence: None)
  Receive Date: 20120824
  Receipt Date: 20120817
  Transmission Date: 20120928
  Serious: Yes (Other)
  Sender: FDA-Public Use
  Company Number: PHHY2012BR072042

PATIENT
  Sex: Male

DRUGS (3)
  1. CLONAZEPAM [Concomitant]
     Indication: SLEEP DISORDER
     Dosage: UNK UKN, UNK
  2. LOSARTAN POTASSIUM [Suspect]
     Dosage: 3 DF, DAILY
  3. DIOVAN HCT [Suspect]
     Indication: HYPERTENSION
     Dosage: 1 DF (160/12.5 MG), UNK

REACTIONS (5)
  - SWELLING [None]
  - HEADACHE [None]
  - CARDIAC DISORDER [None]
  - DRUG INTOLERANCE [None]
  - BLOOD PRESSURE FLUCTUATION [None]
